FAERS Safety Report 4801172-7 (Version None)
Quarter: 2005Q4

REPORT INFORMATION
  Report Type: 
  Country: None (occurrence: None)
  Receive Date: 20051012
  Receipt Date: 20051005
  Transmission Date: 20060501
  Serious: Yes (Hospitalization, Other)
  Sender: FDA-Public Use
  Company Number: 200510629BNE

PATIENT
  Age: 59 Year
  Sex: Male

DRUGS (7)
  1. ASPIRIN [Suspect]
     Indication: PROPHYLAXIS
     Dosage: ORAL
     Route: 048
  2. DICLOFENAC [Suspect]
     Indication: ARTHRITIS
     Dosage: 100 MG, TOTAL DAILY, ORAL
     Route: 048
     Dates: end: 20050915
  3. DICLOFENAC [Suspect]
     Indication: GOUT
     Dosage: 100 MG, TOTAL DAILY, ORAL
     Route: 048
     Dates: end: 20050915
  4. GAVISCON [Concomitant]
  5. SIMVASTATIN [Concomitant]
  6. METOPROLOL [Concomitant]
  7. ACETAMINOPHEN W/ CODEINE [Concomitant]

REACTIONS (3)
  - ABDOMINAL PAIN [None]
  - BLOOD PRESSURE DECREASED [None]
  - HAEMATEMESIS [None]
